FAERS Safety Report 22019456 (Version 15)
Quarter: 2025Q4

REPORT INFORMATION
  Report Type: Report from Study
  Country: None (occurrence: JP)
  Receive Date: 20230222
  Receipt Date: 20251024
  Transmission Date: 20260118
  Serious: Yes (Hospitalization, Other)
  Sender: ALNYLAM PHARMACEUTICALS
  Company Number: JP-ALNYLAM PHARMACEUTICALS, INC.-ALN-2023-000516

PATIENT
  Age: 68 Year
  Weight: 51 kg

DRUGS (25)
  1. ONPATTRO [Suspect]
     Active Substance: PATISIRAN SODIUM
     Indication: Hereditary neuropathic amyloidosis
     Dosage: 15 MILLIGRAM
  2. ONPATTRO [Suspect]
     Active Substance: PATISIRAN SODIUM
     Dosage: 17.4 MILLIGRAM
  3. ONPATTRO [Suspect]
     Active Substance: PATISIRAN SODIUM
     Dosage: 15.6 MILLIGRAM
  4. ONPATTRO [Suspect]
     Active Substance: PATISIRAN SODIUM
     Dosage: 15.2 MILLIGRAM
  5. ONPATTRO [Suspect]
     Active Substance: PATISIRAN SODIUM
     Dosage: 15.4 MILLIGRAM
  6. ONPATTRO [Suspect]
     Active Substance: PATISIRAN SODIUM
     Dosage: 15.5 MILLIGRAM
  7. ONPATTRO [Suspect]
     Active Substance: PATISIRAN SODIUM
     Dosage: 16.0 MILLIGRAM
  8. ONPATTRO [Suspect]
     Active Substance: PATISIRAN SODIUM
     Dosage: 15.3 MILLIGRAM
  9. ONPATTRO [Suspect]
     Active Substance: PATISIRAN SODIUM
     Dosage: 15.0 MILLIGRAM
  10. ONPATTRO [Suspect]
     Active Substance: PATISIRAN SODIUM
     Dosage: 15.15 MILLIGRAM
  11. ONPATTRO [Suspect]
     Active Substance: PATISIRAN SODIUM
     Dosage: 15.27 MILLIGRAM
  12. ONPATTRO [Suspect]
     Active Substance: PATISIRAN SODIUM
     Dosage: 15.0 MILLIGRAM
  13. ONPATTRO [Suspect]
     Active Substance: PATISIRAN SODIUM
     Dosage: 15.2 MILLIGRAM
  14. ONPATTRO [Suspect]
     Active Substance: PATISIRAN SODIUM
     Dosage: 15.5 MILLIGRAM
  15. ONPATTRO [Suspect]
     Active Substance: PATISIRAN SODIUM
     Dosage: 15.0 MILLIGRAM
  16. ONPATTRO [Suspect]
     Active Substance: PATISIRAN SODIUM
     Dosage: 15.3 MILLIGRAM
  17. ONPATTRO [Suspect]
     Active Substance: PATISIRAN SODIUM
     Dosage: 17.4 MILLIGRAM
  18. AMVUTTRA [Suspect]
     Active Substance: VUTRISIRAN
     Indication: Hereditary neuropathic amyloidosis
     Dosage: 25 MILLIGRAM, ONCE EVERY 3 MONTHS
  19. AMVUTTRA [Suspect]
     Active Substance: VUTRISIRAN
     Dosage: 25 MILLIGRAM, Q3M
  20. ORGADRONE [Concomitant]
     Active Substance: DEXAMETHASONE SODIUM PHOSPHATE
     Indication: Prophylaxis
     Dosage: 9.5 MILLIGRAM, WHEN ONPATTRO IS ADMINISTERED
     Route: 065
  21. ACETAMINOPHEN [Concomitant]
     Active Substance: ACETAMINOPHEN
     Indication: Prophylaxis
     Dosage: 500 MILLIGRAM, WHEN ONPATTRO IS ADMINISTERED
     Route: 065
  22. FAMOTIDINE [Concomitant]
     Active Substance: FAMOTIDINE
     Indication: Prophylaxis
     Dosage: 20 MILLIGRAM, WHEN ONPATTRO IS ADMINISTERED
     Route: 065
  23. HYDROXYZINE HYDROCHLORIDE [Concomitant]
     Active Substance: HYDROXYZINE HYDROCHLORIDE
     Indication: Prophylaxis
     Dosage: 25 MILLIGRAM, WHEN ONPATTRO IS ADMINISTERED
     Route: 065
  24. VITAMINS [Concomitant]
     Active Substance: VITAMINS
     Indication: Vitamin supplementation
     Dosage: 1 GRAM, QD
     Route: 065
  25. MIDODRINE HYDROCHLORIDE [Concomitant]
     Active Substance: MIDODRINE HYDROCHLORIDE
     Indication: Orthostatic hypotension
     Dosage: UNK
     Route: 065

REACTIONS (7)
  - Hypothyroidism [Recovered/Resolved]
  - Weight increased [Recovering/Resolving]
  - Asthenia [Recovered/Resolved]
  - Generalised oedema [Recovering/Resolving]
  - Gait disturbance [Recovered/Resolved]
  - Weight increased [Recovering/Resolving]
  - Blood creatine phosphokinase increased [Not Recovered/Not Resolved]
